FAERS Safety Report 12363453 (Version 1)
Quarter: 2016Q2

REPORT INFORMATION
  Report Type: Spontaneous
  Country: US (occurrence: None)
  Receive Date: 20160512
  Receipt Date: 20160512
  Transmission Date: 20160815
  Serious: Yes (Death)
  Sender: FDA-Public Use
  Company Number: None

PATIENT
  Age: 91 Year
  Sex: Female

DRUGS (1)
  1. PARACALCITOL 1 MCG [Suspect]
     Active Substance: PARICALCITOL
     Indication: END STAGE RENAL DISEASE
     Route: 048
     Dates: start: 20141110, end: 20160510

REACTIONS (1)
  - Death [None]

NARRATIVE: CASE EVENT DATE: 20160510
